FAERS Safety Report 9774317 (Version 4)
Quarter: 2014Q1

REPORT INFORMATION
  Report Type: Spontaneous
  Country: DE (occurrence: DE)
  Receive Date: 20131220
  Receipt Date: 20140206
  Transmission Date: 20141002
  Serious: Yes (Hospitalization, Other)
  Sender: FDA-Public Use
  Company Number: DE-ROCHE-1322580

PATIENT
  Sex: Female

DRUGS (2)
  1. LUCENTIS [Suspect]
     Indication: DIABETIC RETINAL OEDEMA
     Dosage: LATEST ADMINISTRATION: 27/NOV/2013
     Route: 050
     Dates: start: 20130925
  2. LUCENTIS [Suspect]
     Dosage: LATEST ADMINISTRATION: 27/NOV/2013
     Route: 050
     Dates: start: 20131024

REACTIONS (4)
  - Vision blurred [Not Recovered/Not Resolved]
  - Multiple use of single-use product [Unknown]
  - Inappropriate schedule of drug administration [Unknown]
  - Foreign body in eye [Not Recovered/Not Resolved]
